FAERS Safety Report 17819396 (Version 1)
Quarter: 2020Q2

REPORT INFORMATION
  Report Type: Spontaneous
  Country: RU (occurrence: RU)
  Receive Date: 20200523
  Receipt Date: 20200523
  Transmission Date: 20200714
  Serious: Yes (Hospitalization)
  Sender: FDA-Public Use
  Company Number: NVSC2020RU140654

PATIENT
  Age: 31 Year
  Sex: Female
  Weight: 128 kg

DRUGS (2)
  1. AMOKSIKLAV [Suspect]
     Active Substance: AMOXICILLIN\CLAVULANATE POTASSIUM
     Indication: CONDITION AGGRAVATED
  2. AMOKSIKLAV [Suspect]
     Active Substance: AMOXICILLIN\CLAVULANATE POTASSIUM
     Indication: CHRONIC TONSILLITIS
     Dosage: 625 MG, TID
     Route: 065
     Dates: start: 20200424, end: 20200426

REACTIONS (9)
  - Leukocytosis [Recovering/Resolving]
  - Blood bilirubin increased [Recovering/Resolving]
  - Eosinophilia [Recovering/Resolving]
  - Drug-induced liver injury [Recovering/Resolving]
  - Nausea [Recovering/Resolving]
  - Pruritus [Recovering/Resolving]
  - Scleral pigmentation [Recovering/Resolving]
  - Aspartate aminotransferase increased [Recovering/Resolving]
  - Alanine aminotransferase increased [Recovering/Resolving]

NARRATIVE: CASE EVENT DATE: 20200426
